FAERS Safety Report 7233211-0 (Version None)
Quarter: 2011Q1

REPORT INFORMATION
  Report Type: 
  Country: None (occurrence: None)
  Receive Date: 20110119
  Receipt Date: 20110114
  Transmission Date: 20110831
  Serious: Yes (Hospitalization)
  Sender: FDA-Public Use
  Company Number: A0906706A

PATIENT
  Age: 54 Year
  Sex: Female

DRUGS (15)
  1. COMPAZINE [Concomitant]
  2. LYRICA [Concomitant]
  3. ZANTAC [Concomitant]
  4. ACYCLOVIR [Concomitant]
  5. CIPRO [Concomitant]
  6. NEUPOGEN [Concomitant]
  7. OXYCODONE [Concomitant]
  8. MELPHALAN [Suspect]
     Indication: MULTIPLE MYELOMA
     Route: 042
     Dates: start: 20101204, end: 20101205
  9. DIFLUCAN [Concomitant]
  10. DOXYCYCLINE [Concomitant]
  11. VELCADE [Suspect]
     Indication: MULTIPLE MYELOMA
     Route: 042
     Dates: start: 20101205
  12. MIRALAX [Concomitant]
  13. CEFTRIAXONE [Concomitant]
  14. K-TAB [Concomitant]
  15. LORAZEPAM [Concomitant]

REACTIONS (2)
  - FEBRILE NEUTROPENIA [None]
  - BACK PAIN [None]
